FAERS Safety Report 22259633 (Version 1)
Quarter: 2023Q2

REPORT INFORMATION
  Report Type: Spontaneous
  Country: US (occurrence: US)
  Receive Date: 20230427
  Receipt Date: 20230427
  Transmission Date: 20230722
  Serious: No
  Sender: FDA-Public Use
  Company Number: US-BAYER-2023A055237

PATIENT
  Age: 50 Year
  Sex: Female

DRUGS (3)
  1. CLIMARA PRO [Suspect]
     Active Substance: ESTRADIOL\LEVONORGESTREL
     Indication: Menopause
     Dosage: UNK
     Route: 062
     Dates: start: 20230318
  2. SYNTHROID [Concomitant]
     Active Substance: LEVOTHYROXINE SODIUM
     Dates: start: 20220303
  3. METFORMIN [Concomitant]
     Active Substance: METFORMIN HYDROCHLORIDE
     Indication: Glucose tolerance impaired
     Dates: start: 20221123

REACTIONS (3)
  - Headache [Recovered/Resolved]
  - Heavy menstrual bleeding [None]
  - Device adhesion issue [None]

NARRATIVE: CASE EVENT DATE: 20230319
